FAERS Safety Report 13137252 (Version 1)
Quarter: 2017Q1

REPORT INFORMATION
  Report Type: Spontaneous
  Country: US (occurrence: US)
  Receive Date: 20170120
  Receipt Date: 20170120
  Transmission Date: 20170428
  Serious: Yes (Other)
  Sender: FDA-Public Use
  Company Number: None

PATIENT
  Sex: Male
  Weight: 44.04 kg

DRUGS (3)
  1. CONCERTA [Suspect]
     Active Substance: METHYLPHENIDATE HYDROCHLORIDE
     Dosage: 18 MG QAM
  2. CLONIDINE. [Concomitant]
     Active Substance: CLONIDINE
  3. CONCERTA [Suspect]
     Active Substance: METHYLPHENIDATE HYDROCHLORIDE
     Indication: ATTENTION DEFICIT/HYPERACTIVITY DISORDER
     Dosage: 84 MG QAM
     Route: 048
     Dates: start: 20120914

REACTIONS (4)
  - Headache [None]
  - Confusional state [None]
  - Product substitution issue [None]
  - Disturbance in attention [None]
